FAERS Safety Report 5269262-5 (Version None)
Quarter: 2007Q1

REPORT INFORMATION
  Report Type: 
  Country: None (occurrence: None)
  Receive Date: 20070319
  Receipt Date: 20070307
  Transmission Date: 20070707
  Serious: Yes (Other)
  Sender: FDA-Public Use
  Company Number: GB-PFIZER INC-2007018392

PATIENT
  Sex: Male

DRUGS (1)
  1. NEURONTIN [Suspect]
     Route: 048

REACTIONS (4)
  - AGGRESSION [None]
  - DRUG WITHDRAWAL SYNDROME [None]
  - PARANOIA [None]
  - PSYCHIATRIC SYMPTOM [None]
